FAERS Safety Report 6213667-2 (Version None)
Quarter: 2009Q2

REPORT INFORMATION
  Report Type: 
  Country: None (occurrence: None)
  Receive Date: 20090601
  Receipt Date: 20090513
  Transmission Date: 20091009
  Serious: Yes (Hospitalization)
  Sender: FDA-Public Use
  Company Number: 000874

PATIENT
  Sex: Female

DRUGS (10)
  1. VIMPAT [Suspect]
     Dosage: (ORAL)
     Route: 048
     Dates: start: 20081117, end: 20081123
  2. VIMPAT [Suspect]
     Dosage: (ORAL)
     Route: 048
     Dates: start: 20081124, end: 20081216
  3. VIMPAT [Suspect]
     Dosage: (ORAL)
     Route: 048
     Dates: start: 20081217, end: 20081219
  4. VIMPAT [Suspect]
     Dosage: (ORAL)
     Route: 048
     Dates: start: 20081220, end: 20090220
  5. VIMPAT [Suspect]
     Dosage: (ORAL)
     Route: 048
     Dates: start: 20090221, end: 20090326
  6. VIMPAT [Suspect]
     Dosage: (ORAL)
     Route: 048
     Dates: start: 20090327, end: 20090331
  7. VIMPAT [Suspect]
     Dosage: (ORAL)
     Route: 048
     Dates: start: 20090401, end: 20090405
  8. VIMPAT [Suspect]
     Dosage: (ORAL)
     Route: 048
     Dates: start: 20090406, end: 20090407
  9. TOPIRAMATE [Concomitant]
  10. OXCARBAZEPINE [Concomitant]

REACTIONS (2)
  - ADVERSE EVENT [None]
  - DRUG INEFFECTIVE [None]
